FAERS Safety Report 11874963 (Version 1)
Quarter: 2015Q4

REPORT INFORMATION
  Report Type: Spontaneous
  Country: US (occurrence: None)
  Receive Date: 20151228
  Receipt Date: 20151228
  Transmission Date: 20160305
  Serious: Yes (Hospitalization)
  Sender: FDA-Public Use
  Company Number: None

PATIENT
  Age: 67 Year
  Sex: Female
  Weight: 92.27 kg

DRUGS (2)
  1. CARBOPLATIN. [Suspect]
     Active Substance: CARBOPLATIN
     Dates: end: 20151221
  2. TAXOL [Suspect]
     Active Substance: PACLITAXEL
     Dates: end: 20151221

REACTIONS (4)
  - Pyrexia [None]
  - Fibrin D dimer increased [None]
  - Chills [None]
  - Pneumonia aspiration [None]

NARRATIVE: CASE EVENT DATE: 20151222
